FAERS Safety Report 4650061-X (Version None)
Quarter: 2005Q2

REPORT INFORMATION
  Report Type: 
  Country: None (occurrence: None)
  Receive Date: 20050428
  Receipt Date: 20050415
  Transmission Date: 20051028
  Serious: Yes (Death)
  Sender: FDA-Public Use
  Company Number: HQWYE082618APR05

PATIENT
  Age: 64 Year
  Sex: Male

DRUGS (2)
  1. CORDARONE [Suspect]
     Indication: ARRHYTHMIA
     Dosage: 0.8 G 1X PER 1 DAY, ORAL
     Route: 048
  2. DIGOXIN [Suspect]
     Dosage: 0.12 MG 1X PER 1 DAY, ORAL
     Route: 048

REACTIONS (1)
  - CARDIAC ARREST [None]
